FAERS Safety Report 25352079 (Version 1)
Quarter: 2025Q2

REPORT INFORMATION
  Report Type: Spontaneous
  Country: US (occurrence: None)
  Receive Date: 20250522
  Receipt Date: 20250522
  Transmission Date: 20250717
  Serious: Yes (Other)
  Sender: FDA-CTU
  Company Number: None

PATIENT
  Age: 49 Year
  Sex: Male
  Weight: 126 kg

DRUGS (2)
  1. ACETAMINOPHEN\HYDROCODONE [Suspect]
     Active Substance: ACETAMINOPHEN\HYDROCODONE
     Indication: Tooth extraction
     Dates: start: 20250515, end: 20250520
  2. CEFDINIR [Concomitant]
     Active Substance: CEFDINIR

REACTIONS (2)
  - Constipation [None]
  - Faecaloma [None]

NARRATIVE: CASE EVENT DATE: 20250520
